FAERS Safety Report 19628274 (Version 1)
Quarter: 2021Q3

REPORT INFORMATION
  Report Type: Spontaneous
  Country: US (occurrence: US)
  Receive Date: 20210728
  Receipt Date: 20210728
  Transmission Date: 20211014
  Serious: Yes (Other)
  Sender: FDA-Public Use
  Company Number: US-SUNSTAR AMERICAS INC.-2114388

PATIENT
  Age: 62 Year
  Sex: Male
  Weight: 106.82 kg

DRUGS (1)
  1. PAROEX [Suspect]
     Active Substance: CHLORHEXIDINE GLUCONATE
     Dates: start: 201902, end: 201912

REACTIONS (15)
  - Lacrimation increased [None]
  - Paraesthesia [None]
  - Night sweats [None]
  - Dyspnoea [None]
  - Fatigue [None]
  - Weight decreased [None]
  - Cold sweat [None]
  - Musculoskeletal stiffness [None]
  - Pain of skin [None]
  - Asthenia [None]
  - Wound secretion [None]
  - Joint swelling [None]
  - Feeling hot [None]
  - Rhinorrhoea [None]
  - Lichen planus [None]
